FAERS Safety Report 5782588-1 (Version None)
Quarter: 2008Q2

REPORT INFORMATION
  Report Type: 
  Country: None (occurrence: None)
  Receive Date: 20080624
  Receipt Date: 20080611
  Transmission Date: 20081010
  Serious: Yes (Other)
  Sender: FDA-Public Use
  Company Number: BR-PFIZER INC-2008049942

PATIENT
  Sex: Female
  Weight: 91 kg

DRUGS (6)
  1. FRONTAL [Suspect]
     Indication: PANIC REACTION
     Route: 048
  2. FRONTAL [Suspect]
     Indication: ANXIETY
  3. FRONTAL [Suspect]
  4. PURAN T4 [Concomitant]
     Indication: HYPOTHYROIDISM
  5. THIORIDAZINE HCL [Concomitant]
     Indication: MANIA
  6. FLUOXETINE [Concomitant]
     Indication: PANIC REACTION

REACTIONS (6)
  - AMNESIA [None]
  - BLOOD CHOLESTEROL INCREASED [None]
  - CHOLELITHIASIS [None]
  - GASTROOESOPHAGEAL REFLUX DISEASE [None]
  - VOMITING [None]
  - WEIGHT INCREASED [None]
